FAERS Safety Report 4567565-0 (Version None)
Quarter: 2005Q1

REPORT INFORMATION
  Report Type: 
  Country: None (occurrence: None)
  Receive Date: 20050118
  Receipt Date: 20040108
  Transmission Date: 20050727
  Serious: Yes (Other)
  Sender: FDA-Public Use
  Company Number: HQWYE282613JAN04

PATIENT
  Age: 60 Year

DRUGS (1)
  1. PREMPRO [Suspect]
     Dosage: ORAL
     Route: 048
     Dates: start: 20000101, end: 20011215

REACTIONS (1)
  - CEREBROVASCULAR ACCIDENT [None]
